FAERS Safety Report 7585681-6 (Version None)
Quarter: 2011Q2

REPORT INFORMATION
  Report Type: 
  Country: None (occurrence: None)
  Receive Date: 20110531
  Receipt Date: 20110415
  Transmission Date: 20111010
  Serious: No
  Sender: FDA-Public Use
  Company Number: 201103043

PATIENT
  Age: 69 Year
  Sex: Male

DRUGS (10)
  1. FENOGLIDE (FENOFIBRATE) [Concomitant]
  2. ASPIRIN [Concomitant]
  3. VERAPAMIL [Concomitant]
  4. FLONASE [Concomitant]
  5. XIAFLEX [Suspect]
     Indication: DUPUYTREN'S CONTRACTURE
     Dosage: 1 IN 1 D, INTRALESIONAL
     Route: 026
     Dates: start: 20110308, end: 20110308
  6. METFORMIN HCL [Concomitant]
  7. AVAPRO [Concomitant]
  8. BONINE (MECLOZINE HYDROCHLORIDE) [Concomitant]
  9. PHENERGAN [Concomitant]
  10. AMOXICILLIN [Concomitant]

REACTIONS (3)
  - OEDEMA PERIPHERAL [None]
  - LOCALISED OEDEMA [None]
  - LACERATION [None]
